FAERS Safety Report 5280285-2 (Version None)
Quarter: 2007Q1

REPORT INFORMATION
  Report Type: 
  Country: None (occurrence: None)
  Receive Date: 20070329
  Receipt Date: 20070320
  Transmission Date: 20070707
  Serious: Yes (Death, Hospitalization)
  Sender: FDA-Public Use
  Company Number: GB-GLAXOSMITHKLINE-B0440146A

PATIENT
  Age: 35 Year
  Sex: Female
  Weight: 59 kg

DRUGS (3)
  1. TRIZIVIR [Suspect]
     Indication: HIV INFECTION
     Route: 048
     Dates: start: 20050324, end: 20050330
  2. ABACAVIR [Suspect]
     Indication: HIV INFECTION
     Route: 065
  3. ACETAMINOPHEN [Suspect]
     Route: 065

REACTIONS (37)
  - ABDOMINAL PAIN [None]
  - ABDOMINAL TENDERNESS [None]
  - ANALGESIC DRUG LEVEL INCREASED [None]
  - BLOOD PRESSURE IMMEASURABLE [None]
  - CARDIAC DISORDER [None]
  - CARDIAC FAILURE [None]
  - CARDIAC TAMPONADE [None]
  - CARDIO-RESPIRATORY ARREST [None]
  - CARDIOGENIC SHOCK [None]
  - CARDIOMEGALY [None]
  - CHEST PAIN [None]
  - COLD SWEAT [None]
  - DEPRESSED LEVEL OF CONSCIOUSNESS [None]
  - DYSPNOEA [None]
  - GAMMA-GLUTAMYLTRANSFERASE INCREASED [None]
  - HEART RATE INCREASED [None]
  - HEPATIC CONGESTION [None]
  - HEPATIC NECROSIS [None]
  - HYPERSENSITIVITY [None]
  - HYPOVOLAEMIA [None]
  - MALAISE [None]
  - MYOCARDIAL INFARCTION [None]
  - PERFORATED ULCER [None]
  - PERICARDIAL EFFUSION [None]
  - PULMONARY EMBOLISM [None]
  - PULMONARY OEDEMA [None]
  - PYREXIA [None]
  - RALES [None]
  - RASH [None]
  - RASH PAPULAR [None]
  - RASH VESICULAR [None]
  - RENAL IMPAIRMENT [None]
  - RESPIRATORY ALKALOSIS [None]
  - RESPIRATORY RATE INCREASED [None]
  - SUPRAPUBIC PAIN [None]
  - SWELLING FACE [None]
  - TACHYCARDIA [None]
